FAERS Safety Report 13122143 (Version 1)
Quarter: 2017Q1

REPORT INFORMATION
  Report Type: Report from Study
  Country: CA (occurrence: CA)
  Receive Date: 20170117
  Receipt Date: 20170117
  Transmission Date: 20170428
  Serious: Yes (Other)
  Sender: FDA-Public Use
  Company Number: CA-JNJFOC-20170107953

PATIENT
  Sex: Male
  Weight: 100 kg

DRUGS (3)
  1. BETAMETHASONE W/SALICYLIC ACID [Concomitant]
     Active Substance: BETAMETHASONE\SALICYLIC ACID
     Route: 061
  2. CIALIS [Concomitant]
     Active Substance: TADALAFIL
     Route: 048
  3. STELARA [Suspect]
     Active Substance: USTEKINUMAB
     Indication: PSORIASIS
     Route: 058
     Dates: start: 20161223

REACTIONS (1)
  - Respiratory tract infection [Recovering/Resolving]
